FAERS Safety Report 25596959 (Version 1)
Quarter: 2025Q3

REPORT INFORMATION
  Report Type: Spontaneous
  Country: US (occurrence: US)
  Receive Date: 20250723
  Receipt Date: 20250723
  Transmission Date: 20251020
  Serious: Yes (Hospitalization, Other)
  Sender: AMNEAL
  Company Number: US-AMNEAL PHARMACEUTICALS-2025-AMRX-02744

PATIENT
  Age: 84 Year
  Sex: Male

DRUGS (2)
  1. METHOTREXATE [Suspect]
     Active Substance: METHOTREXATE
     Indication: Rheumatoid arthritis
     Dosage: 25 MILLIGRAM, 1 /WEEK
     Route: 065
  2. PREDNISONE [Suspect]
     Active Substance: PREDNISONE
     Indication: Rheumatoid arthritis
     Dosage: 10 MILLIGRAM, DAILY, FOR THE PAST FIVE YEARS
     Route: 065

REACTIONS (5)
  - Infectious pleural effusion [Recovering/Resolving]
  - Cryptococcosis [Recovering/Resolving]
  - Pneumonia cryptococcal [Recovering/Resolving]
  - Pulmonary mass [Recovering/Resolving]
  - Oesophageal ulcer [Unknown]
